FAERS Safety Report 6390258-4 (Version None)
Quarter: 2009Q4

REPORT INFORMATION
  Report Type: 
  Country: None (occurrence: None)
  Receive Date: 20091006
  Receipt Date: 20091001
  Transmission Date: 20100525
  Serious: Yes (Hospitalization)
  Sender: FDA-Public Use
  Company Number: B0596481A

PATIENT
  Sex: Female
  Weight: 75 kg

DRUGS (1)
  1. FLIXOTIDE [Suspect]
     Indication: CHRONIC OBSTRUCTIVE PULMONARY DISEASE
     Dosage: 125MCG TWICE PER DAY
     Route: 055
     Dates: start: 20090922, end: 20090922

REACTIONS (2)
  - BLOOD PRESSURE DIASTOLIC DECREASED [None]
  - PRESYNCOPE [None]
